FAERS Safety Report 6161306-1 (Version None)
Quarter: 2009Q2

REPORT INFORMATION
  Report Type: 
  Country: None (occurrence: None)
  Receive Date: 20090421
  Receipt Date: 20090414
  Transmission Date: 20091009
  Serious: Yes (Hospitalization, Disabling, Other)
  Sender: FDA-Public Use
  Company Number: US-B.I. PHARMACEUTICALS,INC./RIDGEFIELD-2008-BP-03603BP

PATIENT
  Sex: Female

DRUGS (6)
  1. SPIRIVA [Suspect]
     Indication: CHRONIC OBSTRUCTIVE PULMONARY DISEASE
     Dosage: 18MCG
     Route: 055
     Dates: start: 20020101
  2. SPIRIVA [Suspect]
     Indication: ASTHMA
  3. ADVAIR HFA [Concomitant]
     Indication: CHRONIC OBSTRUCTIVE PULMONARY DISEASE
     Route: 048
  4. OXYGEN [Concomitant]
     Indication: ASTHMA
     Route: 045
  5. METFORMIN HCL [Concomitant]
     Indication: DIABETES MELLITUS
     Route: 048
  6. SYMBICORT [Concomitant]
     Indication: CHRONIC OBSTRUCTIVE PULMONARY DISEASE
     Dosage: 4PUF
     Route: 048

REACTIONS (13)
  - ARNOLD-CHIARI MALFORMATION [None]
  - CANDIDIASIS [None]
  - CHOKING [None]
  - DIABETES MELLITUS [None]
  - DYSPNOEA [None]
  - HYPOXIA [None]
  - INTRACRANIAL HYPOTENSION [None]
  - ORAL CANDIDIASIS [None]
  - PULMONARY HYPERTENSION [None]
  - PULMONARY THROMBOSIS [None]
  - ROAD TRAFFIC ACCIDENT [None]
  - THROMBOSIS [None]
  - WEIGHT DECREASED [None]
